FAERS Safety Report 9705372 (Version 3)
Quarter: 2014Q1

REPORT INFORMATION
  Report Type: Spontaneous
  Country: ES (occurrence: ES)
  Receive Date: 20131122
  Receipt Date: 20140221
  Transmission Date: 20141002
  Serious: Yes (Hospitalization, Other)
  Sender: FDA-Public Use
  Company Number: ES-PFIZER INC-2013334498

PATIENT
  Age: 47 Year
  Sex: Male

DRUGS (7)
  1. PHENYTOIN SODIUM [Suspect]
     Indication: PARTIAL SEIZURES
     Dosage: 100 MG, 3X/DAY, LAST 7 YEARS
  2. PHENYTOIN SODIUM [Suspect]
     Indication: COMPLEX PARTIAL SEIZURES
  3. LAMOTRIGINE [Suspect]
     Indication: PARTIAL SEIZURES
     Dosage: 100 MG, 2X/DAY LAST 7 YEARS
  4. LAMOTRIGINE [Suspect]
     Indication: COMPLEX PARTIAL SEIZURES
  5. CLOBAZAM [Concomitant]
     Indication: PARTIAL SEIZURES
     Dosage: 10 MG, DAILY
  6. CLOBAZAM [Concomitant]
     Indication: COMPLEX PARTIAL SEIZURES
  7. CLOBAZAM [Concomitant]
     Indication: ANXIETY

REACTIONS (2)
  - Drug reaction with eosinophilia and systemic symptoms [Recovering/Resolving]
  - Tubulointerstitial nephritis [Recovering/Resolving]
